FAERS Safety Report 5221892-2 (Version None)
Quarter: 2007Q1

REPORT INFORMATION
  Report Type: 
  Country: None (occurrence: None)
  Receive Date: 20070126
  Receipt Date: 20070126
  Transmission Date: 20070707
  Serious: Yes (Congenital Anomaly)
  Sender: FDA-Public Use
  Company Number: None

PATIENT
  Age: 32 Year
  Sex: Female
  Weight: 74.8435 kg

DRUGS (2)
  1. PAXIL CR [Suspect]
     Indication: ANXIETY
     Dosage: 1 TABLET  DAILY  PO
     Route: 048
     Dates: start: 20020101, end: 20050101
  2. PAXIL CR [Suspect]
     Indication: PREMENSTRUAL SYNDROME
     Dosage: 1 TABLET  DAILY  PO
     Route: 048
     Dates: start: 20020101, end: 20050101

REACTIONS (2)
  - DRUG EXPOSURE DURING PREGNANCY [None]
  - VENTRICULAR SEPTAL DEFECT [None]
